FAERS Safety Report 24651265 (Version 1)
Quarter: 2024Q4

REPORT INFORMATION
  Report Type: Spontaneous
  Country: GB (occurrence: GB)
  Receive Date: 20241122
  Receipt Date: 20241122
  Transmission Date: 20250115
  Serious: Yes (Other)
  Sender: ROCHE
  Company Number: GB-ROCHE-10000132371

PATIENT
  Age: 62 Year
  Sex: Male

DRUGS (5)
  1. ATEZOLIZUMAB [Suspect]
     Active Substance: ATEZOLIZUMAB
     Indication: Lung cancer metastatic
     Route: 065
     Dates: start: 201906
  2. CARBOPLATIN [Concomitant]
     Active Substance: CARBOPLATIN
  3. PEMETREXED [Concomitant]
     Active Substance: PEMETREXED
  4. DOCETAXEL [Concomitant]
     Active Substance: DOCETAXEL
  5. NINTEDANIB [Concomitant]
     Active Substance: NINTEDANIB

REACTIONS (7)
  - Lymphangitis [Unknown]
  - Pulmonary mass [Unknown]
  - Peritoneal thickening [Unknown]
  - Mass [Unknown]
  - Dyspnoea [Unknown]
  - Pleural effusion [Unknown]
  - Haemoptysis [Unknown]

NARRATIVE: CASE EVENT DATE: 20190601
